FAERS Safety Report 6599929-8 (Version None)
Quarter: 2010Q1

REPORT INFORMATION
  Report Type: 
  Country: None (occurrence: None)
  Receive Date: 20100217
  Receipt Date: 20100210
  Transmission Date: 20100710
  Serious: Yes (Hospitalization)
  Sender: FDA-Public Use
  Company Number: 1000010679

PATIENT
  Age: 63 Year
  Sex: Female
  Weight: 107.9561 kg

DRUGS (12)
  1. SAVELLA [Suspect]
     Indication: FIBROMYALGIA
     Dosage: 12.5 MG (12.5 MG, 1 IN 1 D), ORAL, 25 MG (12.5 MG, 2 IN 1 D), ORAL, 50 MG (25 MG, 2 IN 1  D), ORAL
     Route: 048
     Dates: start: 20091103, end: 20091103
  2. SAVELLA [Suspect]
     Indication: FIBROMYALGIA
     Dosage: 12.5 MG (12.5 MG, 1 IN 1 D), ORAL, 25 MG (12.5 MG, 2 IN 1 D), ORAL, 50 MG (25 MG, 2 IN 1  D), ORAL
     Route: 048
     Dates: start: 20091104, end: 20091105
  3. SAVELLA [Suspect]
     Indication: FIBROMYALGIA
     Dosage: 12.5 MG (12.5 MG, 1 IN 1 D), ORAL, 25 MG (12.5 MG, 2 IN 1 D), ORAL, 50 MG (25 MG, 2 IN 1  D), ORAL
     Route: 048
     Dates: start: 20091106, end: 20091109
  4. SAVELLA [Suspect]
     Indication: FIBROMYALGIA
     Dosage: 100 MG (50 MG, 2 IN 1 D), ORAL
     Route: 048
     Dates: start: 20091110, end: 20091116
  5. SYNTHROID [Concomitant]
  6. PREVACID [Concomitant]
  7. CELEBREX [Concomitant]
  8. IBUPROFEN [Concomitant]
  9. LIDODERM [Concomitant]
  10. VALIUM [Concomitant]
  11. LUNESTA [Concomitant]
  12. AMBIEN [Concomitant]

REACTIONS (8)
  - CHILLS [None]
  - HEADACHE [None]
  - HYPERHIDROSIS [None]
  - INSOMNIA [None]
  - NAUSEA [None]
  - PARAESTHESIA [None]
  - PLEURITIC PAIN [None]
  - PULMONARY EMBOLISM [None]
